FAERS Safety Report 17175600 (Version 5)
Quarter: 2025Q4

REPORT INFORMATION
  Report Type: Spontaneous
  Country: US (occurrence: US)
  Receive Date: 20191219
  Receipt Date: 20251001
  Transmission Date: 20260118
  Serious: Yes (Hospitalization)
  Sender: RECKITT BENCKISER
  Company Number: US-INDIVIOR EUROPE LIMITED-INDV-122469-2019

PATIENT
  Sex: Male

DRUGS (4)
  1. SUBLOCADE [Suspect]
     Active Substance: BUPRENORPHINE
     Indication: Drug dependence
     Dosage: 100 MILLIGRAM, QMO
     Route: 030
     Dates: start: 20190129
  2. SUBLOCADE [Suspect]
     Active Substance: BUPRENORPHINE
  3. SUBLOCADE [Suspect]
     Active Substance: BUPRENORPHINE
     Indication: Drug dependence
     Dosage: UNK, QMO
     Route: 058
  4. LIDOCAINE [Concomitant]
     Active Substance: LIDOCAINE
     Indication: Prophylaxis
     Dosage: UNK
     Route: 065
     Dates: start: 2019

REACTIONS (19)
  - Wrong technique in product usage process [Recovered/Resolved]
  - Pain [Not Recovered/Not Resolved]
  - Weight decreased [Unknown]
  - Inappropriate schedule of product administration [Recovered/Resolved]
  - Dysarthria [Not Recovered/Not Resolved]
  - Gait disturbance [Unknown]
  - Confusional state [Not Recovered/Not Resolved]
  - Constipation [Not Recovered/Not Resolved]
  - Diarrhoea [Unknown]
  - Dizziness [Not Recovered/Not Resolved]
  - Injection site induration [Not Recovered/Not Resolved]
  - Fatigue [Unknown]
  - Nausea [Unknown]
  - Vomiting [Unknown]
  - Wrong technique in product usage process [Recovered/Resolved]
  - Injection site pain [Recovered/Resolved]
  - Incorrect route of product administration [Recovered/Resolved]
  - Malaise [Not Recovered/Not Resolved]
  - Drug dependence [Unknown]

NARRATIVE: CASE EVENT DATE: 20190101
